FAERS Safety Report 16390298 (Version 2)
Quarter: 2019Q2

REPORT INFORMATION
  Report Type: Spontaneous
  Country: DE (occurrence: DE)
  Receive Date: 20190604
  Receipt Date: 20190613
  Transmission Date: 20190711
  Serious: Yes (Hospitalization, Other)
  Sender: FDA-Public Use
  Company Number: DE-EXELIXIS-CABO-19021531

PATIENT
  Age: 76 Year
  Sex: Male
  Weight: 85 kg

DRUGS (12)
  1. LAXANS [Concomitant]
  2. FRAGMIN [Concomitant]
     Active Substance: DALTEPARIN SODIUM
  3. XIPAMID [Concomitant]
     Active Substance: XIPAMIDE
  4. HYDROMORPHONE [Concomitant]
     Active Substance: HYDROMORPHONE
  5. CABOMETYX [Suspect]
     Active Substance: CABOZANTINIB S-MALATE
     Indication: METASTATIC RENAL CELL CARCINOMA
     Dosage: 60 MG, QD
     Route: 048
     Dates: start: 20190516, end: 20190517
  6. ALLOPURINOL. [Concomitant]
     Active Substance: ALLOPURINOL
  7. L-THYROXIN [Concomitant]
     Active Substance: LEVOTHYROXINE SODIUM
  8. BISOPROLOL [Concomitant]
     Active Substance: BISOPROLOL
  9. AMLODIPIN [Concomitant]
     Active Substance: AMLODIPINE BESYLATE
  10. PANTOPRAZOL [Concomitant]
     Active Substance: PANTOPRAZOLE SODIUM
  11. INSULIN GLARGINE [Concomitant]
     Active Substance: INSULIN GLARGINE
     Dosage: 60 MG, UNK
     Dates: start: 20190516
  12. NOVALGIN [Concomitant]

REACTIONS (1)
  - Acute myocardial infarction [Recovering/Resolving]

NARRATIVE: CASE EVENT DATE: 20190516
